FAERS Safety Report 22619456 (Version 1)
Quarter: 2023Q2

REPORT INFORMATION
  Report Type: Spontaneous
  Country: GB (occurrence: GB)
  Receive Date: 20230620
  Receipt Date: 20230620
  Transmission Date: 20230722
  Serious: Yes (Disabling, Other)
  Sender: FDA-Public Use
  Company Number: GB-MHRA-MED-202306071129328080-FHVTQ

PATIENT
  Age: 33 Year
  Sex: Male
  Weight: 56 kg

DRUGS (2)
  1. CIPROFLOXACIN [Suspect]
     Active Substance: CIPROFLOXACIN
     Indication: Urinary tract infection
     Dosage: 500MG, TWICE A DAY; ;
     Dates: start: 20230122, end: 20230131
  2. NITROFURANTOIN [Concomitant]
     Active Substance: NITROFURANTOIN
     Indication: Urinary tract infection

REACTIONS (28)
  - Brain fog [Recovered/Resolved with Sequelae]
  - Vitreous floaters [Not Recovered/Not Resolved]
  - Depersonalisation/derealisation disorder [Recovered/Resolved]
  - Dry skin [Recovered/Resolved]
  - Muscle twitching [Recovered/Resolved with Sequelae]
  - Spinal pain [Recovered/Resolved]
  - Pain in extremity [Recovered/Resolved with Sequelae]
  - Stool analysis abnormal [Not Recovered/Not Resolved]
  - Bowel movement irregularity [Recovered/Resolved with Sequelae]
  - Chills [Not Recovered/Not Resolved]
  - Photopsia [Recovered/Resolved]
  - Panic attack [Recovered/Resolved]
  - Tendon pain [Recovered/Resolved with Sequelae]
  - Confusional state [Recovered/Resolved]
  - Myoclonus [Recovered/Resolved with Sequelae]
  - Insomnia [Recovered/Resolved with Sequelae]
  - Vision blurred [Not Recovered/Not Resolved]
  - Fatigue [Recovered/Resolved with Sequelae]
  - Anxiety [Recovering/Resolving]
  - Chest pain [Recovered/Resolved]
  - Palpitations [Recovered/Resolved with Sequelae]
  - Hypertension [Recovered/Resolved]
  - Tendonitis [Recovered/Resolved with Sequelae]
  - Neuropathy peripheral [Not Recovered/Not Resolved]
  - Dyspnoea [Recovered/Resolved with Sequelae]
  - Memory impairment [Recovered/Resolved]
  - Abdominal pain [Recovered/Resolved with Sequelae]
  - Paraesthesia [Recovered/Resolved with Sequelae]
